FAERS Safety Report 17162323 (Version 24)
Quarter: 2022Q4

REPORT INFORMATION
  Report Type: Spontaneous
  Country: GB (occurrence: GB)
  Receive Date: 20191217
  Receipt Date: 20221221
  Transmission Date: 20230113
  Serious: Yes (Other)
  Sender: FDA-Public Use
  Company Number: None

PATIENT
  Age: 32 Year
  Sex: Female

DRUGS (54)
  1. AMISULPRIDE [Suspect]
     Active Substance: AMISULPRIDE
     Indication: Hallucination, auditory
     Dosage: 100 MILLIGRAM (VAGINAL TABLET)
     Route: 048
     Dates: start: 20050215
  2. AMISULPRIDE [Suspect]
     Active Substance: AMISULPRIDE
     Dosage: UNK (TABLET)
     Route: 065
     Dates: start: 20050215
  3. AMISULPRIDE [Suspect]
     Active Substance: AMISULPRIDE
     Dosage: UNK (VAGINAL TABLET)
     Route: 065
  4. AMISULPRIDE [Suspect]
     Active Substance: AMISULPRIDE
     Dosage: UNK (VAGINAL TABLET)
     Route: 065
  5. ARIPIPRAZOLE [Suspect]
     Active Substance: ARIPIPRAZOLE
     Indication: Hallucination, auditory
     Dosage: UNK
     Route: 065
  6. ARIPIPRAZOLE [Suspect]
     Active Substance: ARIPIPRAZOLE
     Dosage: UNK (TABLET)
     Route: 065
     Dates: start: 2019
  7. ARIPIPRAZOLE [Suspect]
     Active Substance: ARIPIPRAZOLE
     Dosage: UNK (TABLET)
     Route: 065
     Dates: start: 2019
  8. ARIPIPRAZOLE [Suspect]
     Active Substance: ARIPIPRAZOLE
     Dosage: UNK (TABLET)
     Route: 065
     Dates: start: 2019, end: 2019
  9. ARIPIPRAZOLE [Suspect]
     Active Substance: ARIPIPRAZOLE
     Dosage: UNK (TABLET)
     Route: 048
     Dates: start: 2019
  10. ARIPIPRAZOLE [Suspect]
     Active Substance: ARIPIPRAZOLE
     Dosage: UNK (TABLET)
     Route: 048
     Dates: start: 2019
  11. CLOZAPINE [Suspect]
     Active Substance: CLOZAPINE
     Indication: Schizophrenia
     Dosage: UNK (TABLET)
     Route: 048
  12. CLOZAPINE [Suspect]
     Active Substance: CLOZAPINE
     Indication: Schizoaffective disorder
     Dosage: UNK (TABLET)
     Route: 048
     Dates: start: 20050215
  13. CLOZAPINE [Suspect]
     Active Substance: CLOZAPINE
     Dosage: UNK UNK, QD TABLET
     Route: 048
  14. CLOZAPINE [Suspect]
     Active Substance: CLOZAPINE
     Dosage: UNK UNK, QD TABLET
     Route: 048
     Dates: start: 20050215, end: 20171205
  15. CLOZAPINE [Suspect]
     Active Substance: CLOZAPINE
     Dosage: UNK,  (TABLET)
     Route: 048
     Dates: start: 20050215, end: 2019
  16. CLOZAPINE [Suspect]
     Active Substance: CLOZAPINE
     Dosage: UNK, (TABLET)
     Route: 048
     Dates: start: 20150215, end: 20171205
  17. CLOZAPINE [Suspect]
     Active Substance: CLOZAPINE
     Dosage: UNK (TABLET)
     Route: 048
     Dates: start: 2006, end: 20171205
  18. CLOZAPINE [Suspect]
     Active Substance: CLOZAPINE
     Dosage: UNK UNK, QD TABLET
     Route: 048
     Dates: start: 20180205, end: 20191205
  19. CLOZAPINE [Suspect]
     Active Substance: CLOZAPINE
     Dosage: UNK,TABLET
     Route: 048
     Dates: start: 201909
  20. CLOZAPINE [Suspect]
     Active Substance: CLOZAPINE
     Dosage: UNK UNK, QD TABLET
     Route: 048
     Dates: start: 2019
  21. CLOZAPINE [Suspect]
     Active Substance: CLOZAPINE
     Dosage: UNK,TABLET
     Route: 048
     Dates: start: 20150215, end: 20171205
  22. CLOZAPINE [Suspect]
     Active Substance: CLOZAPINE
     Dosage: UNK, QD TABLET
     Route: 048
     Dates: start: 20181205, end: 20191205
  23. CLOZAPINE [Suspect]
     Active Substance: CLOZAPINE
     Dosage: UNK UNK, QD TABLET
     Route: 048
     Dates: start: 20181205, end: 20191205
  24. CLOZAPINE [Suspect]
     Active Substance: CLOZAPINE
     Dosage: UNK (TABLET)
     Route: 048
  25. CLOZAPINE [Suspect]
     Active Substance: CLOZAPINE
     Dosage: UNK UNK, QD TABLET
     Route: 048
     Dates: start: 20191205
  26. CLOZAPINE [Suspect]
     Active Substance: CLOZAPINE
     Dosage: UNK UNK, QD TABLET
     Route: 048
     Dates: start: 20181205, end: 2019
  27. CLOZAPINE [Suspect]
     Active Substance: CLOZAPINE
     Dosage: UNK (TABLET)
     Route: 065
     Dates: start: 20050215, end: 20071205
  28. CLOZAPINE [Suspect]
     Active Substance: CLOZAPINE
     Dosage: UNK (TABLET)
     Route: 065
     Dates: start: 20150215
  29. OLANZAPINE [Suspect]
     Active Substance: OLANZAPINE
     Indication: Hallucination, auditory
     Dosage: UNK
     Route: 048
  30. OLANZAPINE [Suspect]
     Active Substance: OLANZAPINE
     Indication: Schizophrenia
     Dosage: UNK
     Route: 048
  31. QUETIAPINE FUMARATE [Suspect]
     Active Substance: QUETIAPINE FUMARATE
     Indication: Product used for unknown indication
     Dosage: UNK (FILM COATED TABLETS)
     Route: 048
  32. QUETIAPINE FUMARATE [Suspect]
     Active Substance: QUETIAPINE FUMARATE
     Dosage: UNK (FILM COATED TABLETS)
     Route: 065
  33. QUETIAPINE FUMARATE [Suspect]
     Active Substance: QUETIAPINE FUMARATE
     Dosage: UNK
     Route: 065
  34. QUETIAPINE FUMARATE [Suspect]
     Active Substance: QUETIAPINE FUMARATE
     Dosage: UNK
     Route: 048
  35. QUETIAPINE FUMARATE [Suspect]
     Active Substance: QUETIAPINE FUMARATE
     Dosage: UNK (FILM COATED TABLETS)
     Route: 048
  36. QUETIAPINE FUMARATE [Suspect]
     Active Substance: QUETIAPINE FUMARATE
     Dosage: UNK (FILM COATED TABLETS)
     Route: 048
  37. QUETIAPINE FUMARATE [Suspect]
     Active Substance: QUETIAPINE FUMARATE
     Dosage: UNK (FILM COATED TABLETS)
     Route: 048
  38. QUETIAPINE FUMARATE [Suspect]
     Active Substance: QUETIAPINE FUMARATE
     Dosage: UNK (FILM COATED TABLETS)
     Route: 048
  39. QUETIAPINE FUMARATE [Suspect]
     Active Substance: QUETIAPINE FUMARATE
     Dosage: UNK (FILM COATED TABLETS)
     Route: 048
  40. QUETIAPINE FUMARATE [Suspect]
     Active Substance: QUETIAPINE FUMARATE
     Dosage: UNK (FILM COATED TABLETS)
     Route: 048
  41. HALDOL [Suspect]
     Active Substance: HALOPERIDOL
     Indication: Hallucination, auditory
     Dosage: UNK
     Route: 065
  42. HALDOL [Suspect]
     Active Substance: HALOPERIDOL
     Indication: Schizophrenia
     Dosage: UNK
     Route: 065
     Dates: start: 2006, end: 20171205
  43. HALDOL [Suspect]
     Active Substance: HALOPERIDOL
     Dosage: UNK
     Route: 065
     Dates: start: 2019
  44. HALDOL [Suspect]
     Active Substance: HALOPERIDOL
     Dosage: UNK
     Route: 065
     Dates: start: 2019
  45. RISPERDAL [Suspect]
     Active Substance: RISPERIDONE
     Indication: Hallucination, auditory
     Dosage: UNK
     Route: 065
  46. RISPERDAL [Suspect]
     Active Substance: RISPERIDONE
     Indication: Schizophrenia
     Dosage: UNK
     Route: 065
  47. RISPERDAL [Suspect]
     Active Substance: RISPERIDONE
     Dosage: UNK
     Route: 065
  48. RISPERDAL [Suspect]
     Active Substance: RISPERIDONE
     Dosage: UNK
     Route: 065
     Dates: start: 2006, end: 20171205
  49. ZUCLOPENTHIXOL [Suspect]
     Active Substance: ZUCLOPENTHIXOL
     Indication: Hallucination, auditory
     Dosage: UNK, (TABLET)
     Route: 048
  50. ZUCLOPENTHIXOL [Suspect]
     Active Substance: ZUCLOPENTHIXOL
     Indication: Schizophrenia
     Dosage: UNK, (TABLET, UNCOATED)
     Route: 048
  51. ZUCLOPENTHIXOL [Suspect]
     Active Substance: ZUCLOPENTHIXOL
     Dosage: UNK, (TABLET)
     Route: 048
     Dates: start: 2006, end: 20171205
  52. ZUCLOPENTHIXOL [Suspect]
     Active Substance: ZUCLOPENTHIXOL
     Dosage: UNK, (TABLET), FILM-COATED TABLET
     Route: 048
     Dates: start: 2006, end: 20171205
  53. ZUCLOPENTHIXOL [Suspect]
     Active Substance: ZUCLOPENTHIXOL
     Dosage: UNK, (TABLET)
     Route: 048
     Dates: start: 2006, end: 20171205
  54. ZUCLOPENTHIXOL [Suspect]
     Active Substance: ZUCLOPENTHIXOL
     Dosage: UNK, TABLET
     Route: 065
     Dates: start: 20060615, end: 20171205

REACTIONS (18)
  - Drug abuse [Unknown]
  - Drug ineffective [Unknown]
  - Eating disorder [Unknown]
  - Malaise [Unknown]
  - Eosinophil count decreased [Recovered/Resolved]
  - Intentional product misuse [Unknown]
  - Leukopenia [Recovered/Resolved]
  - Mental impairment [Not Recovered/Not Resolved]
  - Medication error [Unknown]
  - Malaise [Not Recovered/Not Resolved]
  - Neutropenia [Recovered/Resolved]
  - Neutropenia [Recovered/Resolved]
  - Product use in unapproved indication [Unknown]
  - Product use in unapproved indication [Unknown]
  - Refusal of examination [Unknown]
  - Schizophrenia [Not Recovered/Not Resolved]
  - Schizophrenia [Not Recovered/Not Resolved]
  - Suicidal ideation [Unknown]

NARRATIVE: CASE EVENT DATE: 20170901
